FAERS Safety Report 16736794 (Version 2)
Quarter: 2020Q1

REPORT INFORMATION
  Report Type: Report from Study
  Country: CA (occurrence: CA)
  Receive Date: 20190823
  Receipt Date: 20200110
  Transmission Date: 20200409
  Serious: Yes (Hospitalization)
  Sender: FDA-Public Use
  Company Number: CA-ROCHE-2359069

PATIENT
  Age: 64 Year
  Sex: Female

DRUGS (30)
  1. RITUXAN [Suspect]
     Active Substance: RITUXIMAB
     Indication: RHEUMATOID ARTHRITIS
     Dosage: DAY 1,15
     Route: 042
     Dates: start: 20181024
  2. DOCUSATE SODIUM. [Concomitant]
     Active Substance: DOCUSATE SODIUM
  3. METHYLPREDNISOLONE. [Concomitant]
     Active Substance: METHYLPREDNISOLONE
     Indication: PREMEDICATION
     Route: 042
     Dates: start: 20181026
  4. RITUXAN [Suspect]
     Active Substance: RITUXIMAB
     Indication: ANKYLOSING SPONDYLITIS
  5. XARELTO [Concomitant]
     Active Substance: RIVAROXABAN
  6. FOLIC ACID. [Concomitant]
     Active Substance: FOLIC ACID
  7. PREDNISONE. [Concomitant]
     Active Substance: PREDNISONE
  8. ADVAIR HFA [Concomitant]
     Active Substance: FLUTICASONE PROPIONATE\SALMETEROL XINAFOATE
  9. COLACE [Concomitant]
     Active Substance: DOCUSATE SODIUM
  10. SENOKOT [Concomitant]
     Active Substance: SENNOSIDES
  11. RITUXAN [Suspect]
     Active Substance: RITUXIMAB
     Indication: SYSTEMIC LUPUS ERYTHEMATOSUS
  12. OXYGEN. [Concomitant]
     Active Substance: OXYGEN
     Indication: DYSPNOEA
  13. SIMBRINZA [Concomitant]
     Active Substance: BRIMONIDINE TARTRATE\BRINZOLAMIDE
  14. NOVORAPID [Concomitant]
     Active Substance: INSULIN ASPART
  15. PANTOPRAZOLE [Concomitant]
     Active Substance: PANTOPRAZOLE
  16. DOMPERIDONE [Concomitant]
     Active Substance: DOMPERIDONE
  17. METHOTREXATE. [Concomitant]
     Active Substance: METHOTREXATE
  18. VENTOLIN [Concomitant]
     Active Substance: ALBUTEROL SULFATE
  19. HYDROMORPHONE [Concomitant]
     Active Substance: HYDROMORPHONE
  20. LATANOPROST. [Concomitant]
     Active Substance: LATANOPROST
  21. MAGNESIUM [Concomitant]
     Active Substance: MAGNESIUM
  22. ELTROXIN [Concomitant]
     Active Substance: LEVOTHYROXINE
  23. APIXABAN [Concomitant]
     Active Substance: APIXABAN
     Indication: THROMBOSIS
  24. DORZOLAMIDE [Concomitant]
     Active Substance: DORZOLAMIDE
  25. LANTUS [Concomitant]
     Active Substance: INSULIN GLARGINE
  26. ACETAMINOPHEN. [Concomitant]
     Active Substance: ACETAMINOPHEN
     Indication: PREMEDICATION
     Route: 048
     Dates: start: 20181026
  27. RAMIPRIL. [Concomitant]
     Active Substance: RAMIPRIL
  28. HYDROMORPH CONTIN [Concomitant]
     Active Substance: HYDROMORPHONE
  29. LASIX [Concomitant]
     Active Substance: FUROSEMIDE
  30. DIPHENHYDRAMINE HCL [Concomitant]
     Active Substance: DIPHENHYDRAMINE HYDROCHLORIDE
     Indication: PREMEDICATION
     Route: 048
     Dates: start: 20181026

REACTIONS (13)
  - Intentional product use issue [Unknown]
  - Influenza [Unknown]
  - Dyspnoea [Not Recovered/Not Resolved]
  - Blood pressure diastolic abnormal [Unknown]
  - Heart rate increased [Unknown]
  - Spinal compression fracture [Unknown]
  - Asthenia [Not Recovered/Not Resolved]
  - Off label use [Unknown]
  - Pulmonary thrombosis [Unknown]
  - Dyspnoea [Not Recovered/Not Resolved]
  - Blood pressure systolic increased [Unknown]
  - Thrombosis [Not Recovered/Not Resolved]
  - Ill-defined disorder [Unknown]

NARRATIVE: CASE EVENT DATE: 201903
